FAERS Safety Report 12624516 (Version 1)
Quarter: 2016Q3

REPORT INFORMATION
  Report Type: Spontaneous
  Country: US (occurrence: None)
  Receive Date: 20160804
  Receipt Date: 20160804
  Transmission Date: 20161109
  Serious: No
  Sender: FDA-Public Use
  Company Number: None

PATIENT
  Sex: Female

DRUGS (1)
  1. INVOKANA [Suspect]
     Active Substance: CANAGLIFLOZIN

REACTIONS (5)
  - Oral pain [None]
  - Unevaluable event [None]
  - Thyroid disorder [None]
  - Drug ineffective [None]
  - Blood glucose abnormal [None]
